FAERS Safety Report 4317559-5 (Version None)
Quarter: 2004Q1

REPORT INFORMATION
  Report Type: 
  Country: None (occurrence: None)
  Receive Date: 20040312
  Receipt Date: 20040302
  Transmission Date: 20041129
  Serious: No
  Sender: FDA-Public Use
  Company Number: 04P-008-0252377-00

PATIENT
  Age: 59 Year
  Sex: Male
  Weight: 99.6 kg

DRUGS (2)
  1. MERIDIA [Suspect]
     Indication: OBESITY
     Dosage: 10 MG, 1 IN 1 D, PER ORAL
     Route: 048
     Dates: start: 20031204, end: 20040203
  2. MONOGLEUS [Concomitant]

REACTIONS (1)
  - PROSTATE CANCER METASTATIC [None]
